FAERS Safety Report 9207060 (Version 1)
Quarter: 2013Q2

REPORT INFORMATION
  Report Type: Spontaneous
  Country: US (occurrence: US)
  Receive Date: 20130403
  Receipt Date: 20130403
  Transmission Date: 20140414
  Serious: Yes (Hospitalization, Other)
  Sender: FDA-Public Use
  Company Number: PHEH2013US007445

PATIENT
  Age: 26 Year
  Sex: Male
  Weight: 70.8 kg

DRUGS (2)
  1. TOBI [Suspect]
     Indication: CYSTIC FIBROSIS
     Dosage: 112 MG, BID
     Dates: start: 20120906, end: 20121229
  2. TOBI [Suspect]
     Dosage: UNK

REACTIONS (3)
  - Cystic fibrosis [Recovered/Resolved]
  - Haemoptysis [Recovered/Resolved]
  - Lung infection [Recovering/Resolving]
